FAERS Safety Report 4741900-2 (Version None)
Quarter: 2005Q3

REPORT INFORMATION
  Report Type: 
  Country: None (occurrence: None)
  Receive Date: 20050801
  Receipt Date: 20050618
  Transmission Date: 20060218
  Serious: No
  Sender: FDA-Public Use
  Company Number: 2005PV000071

PATIENT
  Age: 50 Year
  Sex: Female
  Weight: 120.2032 kg

DRUGS (8)
  1. BYETTA [Suspect]
     Indication: DIABETES MELLITUS NON-INSULIN-DEPENDENT
     Dosage: 5 UG;BID;SC
     Route: 058
     Dates: start: 20040616
  2. LANTUS [Concomitant]
  3. HUMALOG [Concomitant]
  4. CYMBALTA [Concomitant]
  5. ATENOLOL [Concomitant]
  6. BENICAR [Concomitant]
  7. ZOCOR [Concomitant]
  8. LANTUS [Concomitant]

REACTIONS (3)
  - DECREASED APPETITE [None]
  - ENERGY INCREASED [None]
  - NAUSEA [None]
